FAERS Safety Report 5545669-3 (Version None)
Quarter: 2007Q4

REPORT INFORMATION
  Report Type: 
  Country: None (occurrence: None)
  Receive Date: 20071211
  Receipt Date: 20071204
  Transmission Date: 20080405
  Serious: Yes (Other)
  Sender: FDA-Public Use
  Company Number: US-AVENTIS-200718502US

PATIENT
  Age: 43 Year
  Sex: Female
  Weight: 84.99 kg

DRUGS (2)
  1. ALLEGRA-D                          /01413301/ [Suspect]
     Dosage: DOSE: 1 TABLET
     Route: 048
     Dates: start: 20060501
  2. SINGULAIR [Concomitant]
     Indication: ASTHMA
     Route: 055

REACTIONS (1)
  - WEIGHT DECREASED [None]
